FAERS Safety Report 24263296 (Version 2)
Quarter: 2025Q1

REPORT INFORMATION
  Report Type: Spontaneous
  Country: US (occurrence: US)
  Receive Date: 20240829
  Receipt Date: 20250217
  Transmission Date: 20250409
  Serious: Yes (Other)
  Sender: BAYER HEALTHCARE PHARMACEUTICALS INC.
  Company Number: US-BAYER-2024A119385

PATIENT
  Age: 78 Year
  Sex: Male
  Weight: 64.9 kg

DRUGS (23)
  1. NUBEQA [Suspect]
     Active Substance: DAROLUTAMIDE
     Indication: Prostate cancer
     Dates: start: 20240729
  2. TYVASO [Suspect]
     Active Substance: TREPROSTINIL
     Indication: Pulmonary arterial hypertension
     Dosage: 18 ?G, QID
     Route: 045
     Dates: start: 20240101
  3. TYVASO [Suspect]
     Active Substance: TREPROSTINIL
     Indication: Pulmonary arterial hypertension
     Dosage: 18 ?G, QID
     Route: 045
     Dates: start: 20240722
  4. OFEV [Suspect]
     Active Substance: NINTEDANIB
     Indication: Product used for unknown indication
  5. APALUTAMIDE [Concomitant]
     Active Substance: APALUTAMIDE
  6. FUROSEMIDE [Concomitant]
     Active Substance: FUROSEMIDE
  7. ROSUVASTATIN CALCIUM [Concomitant]
     Active Substance: ROSUVASTATIN CALCIUM
  8. MIRALAX [Concomitant]
     Active Substance: POLYETHYLENE GLYCOL 3350
  9. TADALAFIL [Suspect]
     Active Substance: TADALAFIL
  10. ASPIRIN [Concomitant]
     Active Substance: ASPIRIN
  11. METOPROLOL SUCCINATE [Concomitant]
     Active Substance: METOPROLOL SUCCINATE
  12. METFORMIN HYDROCHLORIDE [Concomitant]
     Active Substance: METFORMIN HYDROCHLORIDE
  13. PREDNISONE [Concomitant]
     Active Substance: PREDNISONE
  14. VITAMIN D3 [Concomitant]
     Active Substance: CHOLECALCIFEROL
  15. BUDESONIDE [Concomitant]
     Active Substance: BUDESONIDE
  16. OXYGEN [Concomitant]
     Active Substance: OXYGEN
  17. CETIRIZINE HCL [Concomitant]
     Active Substance: CETIRIZINE HYDROCHLORIDE
  18. TRAZODONE HYDROCHLORIDE [Suspect]
     Active Substance: TRAZODONE HYDROCHLORIDE
  19. YUPELRI [Concomitant]
     Active Substance: REVEFENACIN
  20. MUCINEX [Concomitant]
     Active Substance: GUAIFENESIN
  21. VITAMIN B COMPLEX [Concomitant]
     Active Substance: CYANOCOBALAMIN\DEXPANTHENOL\NIACINAMIDE\PYRIDOXINE HYDROCHLORIDE\RIBOFLAVIN 5^-PHOSPHATE SODIUM\THIA
  22. NINTEDANIB ESYLATE [Concomitant]
     Active Substance: NINTEDANIB ESYLATE
  23. ERLEADA [Concomitant]
     Active Substance: APALUTAMIDE

REACTIONS (8)
  - Oxygen saturation decreased [Unknown]
  - Dyspnoea exertional [Unknown]
  - Chills [Recovered/Resolved]
  - Diarrhoea [Unknown]
  - Full blood count decreased [Unknown]
  - Blood pressure increased [Unknown]
  - Fatigue [Unknown]
  - Drug interaction [Unknown]

NARRATIVE: CASE EVENT DATE: 20240101
